FAERS Safety Report 16254383 (Version 1)
Quarter: 2019Q2

REPORT INFORMATION
  Report Type: Spontaneous
  Country: FR (occurrence: FR)
  Receive Date: 20190430
  Receipt Date: 20190430
  Transmission Date: 20190711
  Serious: Yes (Hospitalization, Other)
  Sender: FDA-Public Use
  Company Number: FR-AUROBINDO-AUR-APL-2019-022032

PATIENT

DRUGS (1)
  1. BISOPROLOL [Suspect]
     Active Substance: BISOPROLOL
     Indication: ISCHAEMIC CARDIOMYOPATHY
     Dosage: UNK, CF COMMENTAIRES
     Route: 048
     Dates: start: 20180407, end: 20180506

REACTIONS (1)
  - Bradycardia [Recovering/Resolving]

NARRATIVE: CASE EVENT DATE: 20180506
